FAERS Safety Report 17443503 (Version 1)
Quarter: 2020Q1

REPORT INFORMATION
  Report Type: Spontaneous
  Country: US (occurrence: US)
  Receive Date: 20200206
  Receipt Date: 20200206
  Transmission Date: 20200409
  Serious: Yes (Hospitalization)
  Sender: FDA-Public Use
  Company Number: None

PATIENT
  Age: 63 Year
  Sex: Female
  Weight: 118.39 kg

DRUGS (1)
  1. YESCARTA [Suspect]
     Active Substance: AXICABTAGENE CILOLEUCEL
     Indication: DIFFUSE LARGE B-CELL LYMPHOMA
     Dosage: ?          OTHER DOSE:2 X 10 ^6 PER KG ;?
     Dates: start: 20190903

REACTIONS (16)
  - Confusional state [None]
  - Fatigue [None]
  - Nervous system disorder [None]
  - Dizziness [None]
  - Speech disorder [None]
  - Tremor [None]
  - Aphasia [None]
  - Syncope [None]
  - Neurotoxicity [None]
  - Pyrexia [None]
  - Asthenia [None]
  - Nausea [None]
  - Mobility decreased [None]
  - Lethargy [None]
  - Disorientation [None]
  - Loss of consciousness [None]

NARRATIVE: CASE EVENT DATE: 20190910
